FAERS Safety Report 4550314-X (Version None)
Quarter: 2004Q4

REPORT INFORMATION
  Report Type: 
  Country: None (occurrence: None)
  Receive Date: 20041227
  Receipt Date: 20041109
  Transmission Date: 20050328
  Serious: No
  Sender: FDA-Public Use
  Company Number: 04P-163-0280021-00

PATIENT
  Age: 53 Year
  Sex: Female
  Weight: 136 kg

DRUGS (9)
  1. HUMIRA [Suspect]
     Indication: RHEUMATOID ARTHRITIS
     Dosage: 40 MG, 1 IN 2 WK, SUBCUTANEOUS
     Route: 058
     Dates: start: 20040201
  2. LEFLUNOMIDE [Concomitant]
  3. CLONAZEPAM [Concomitant]
  4. ACETYLSALICYLIC ACID SRT [Concomitant]
  5. FENOFIBRATE [Concomitant]
  6. PROPRANOLOL HYDROCHLORIDE [Concomitant]
  7. PAROXETINE HCL [Concomitant]
  8. LEVOTHYROXINE SODIUM [Concomitant]
  9. DIAZEPAM [Concomitant]

REACTIONS (3)
  - INJECTION SITE HAEMORRHAGE [None]
  - INJECTION SITE PAIN [None]
  - MEDICATION ERROR [None]
